FAERS Safety Report 7158765-4 (Version None)
Quarter: 2010Q4

REPORT INFORMATION
  Report Type: 
  Country: None (occurrence: None)
  Receive Date: 20101214
  Receipt Date: 20101213
  Transmission Date: 20110411
  Serious: Yes (Hospitalization, Other)
  Sender: FDA-Public Use
  Company Number: US-ROXANE LABORATORIES, INC.-2010-RO-01675RO

PATIENT
  Sex: Female

DRUGS (3)
  1. FUROSEMIDE [Suspect]
     Indication: HYPERTENSION
  2. TRIAMTERENE [Suspect]
     Indication: HYPERTENSION
  3. HYDROCHLOROTHIAZIDE [Suspect]
     Indication: HYPERTENSION

REACTIONS (2)
  - HYPONATRAEMIA [None]
  - STRESS CARDIOMYOPATHY [None]
